FAERS Safety Report 7408205-2 (Version None)
Quarter: 2011Q2

REPORT INFORMATION
  Report Type: 
  Country: None (occurrence: None)
  Receive Date: 20110412
  Receipt Date: 20100208
  Transmission Date: 20111010
  Serious: No
  Sender: FDA-Public Use
  Company Number: US-BAYER-201014159NA

PATIENT
  Sex: Female

DRUGS (1)
  1. MIRENA [Suspect]
     Indication: POLYCYSTIC OVARIES
     Dosage: 20 ?G/D, CONT
     Route: 015
     Dates: start: 20090801, end: 20090101

REACTIONS (5)
  - AMENORRHOEA [None]
  - POST PROCEDURAL HAEMORRHAGE [None]
  - OVARIAN CYST [None]
  - ABDOMINAL DISTENSION [None]
  - MUSCLE SPASMS [None]
